FAERS Safety Report 15689120 (Version 1)
Quarter: 2018Q4

REPORT INFORMATION
  Report Type: Spontaneous
  Country: AU (occurrence: US)
  Receive Date: 20181205
  Receipt Date: 20181205
  Transmission Date: 20190205
  Serious: Yes (Other)
  Sender: FDA-Public Use
  Company Number: AU-JNJFOC-20181128137

PATIENT

DRUGS (1)
  1. HUMAN THROMBIN [Suspect]
     Active Substance: THROMBIN HUMAN
     Indication: HAEMOSTASIS
     Route: 065

REACTIONS (4)
  - Post procedural complication [Unknown]
  - Haemorrhage [Unknown]
  - Drug ineffective [Unknown]
  - Surgery [Unknown]
